FAERS Safety Report 6234412-0 (Version None)
Quarter: 2009Q2

REPORT INFORMATION
  Report Type: 
  Country: None (occurrence: None)
  Receive Date: 20090616
  Receipt Date: 20090616
  Transmission Date: 20091009
  Serious: Yes (Other)
  Sender: FDA-Public Use
  Company Number: None

PATIENT
  Age: 73 Year
  Sex: Female

DRUGS (11)
  1. TRAVATAN Z [Suspect]
     Indication: GLAUCOMA
     Dosage: 1 DROP EVERY DAY OPTHALMIC
     Route: 047
     Dates: start: 20090219, end: 20090224
  2. FELODIPINE [Concomitant]
  3. LISINOPRIL [Concomitant]
  4. DOXYCYCLINE [Concomitant]
  5. METOPROLOL SUCCINATE [Concomitant]
  6. CYTOMEL [Concomitant]
  7. LEVOTHYROXINE SODIUM [Concomitant]
  8. HYDROCHLOROTHIAZDE TAB [Concomitant]
  9. ALPRAZOLAM [Concomitant]
  10. DEXTROAMPHETAMINE [Concomitant]
  11. PYRIDOSTIGMINE BROMIDE [Concomitant]

REACTIONS (3)
  - LACRIMATION INCREASED [None]
  - OCULAR HYPERAEMIA [None]
  - PRODUCT SUBSTITUTION ISSUE [None]
